FAERS Safety Report 6297561-7 (Version None)
Quarter: 2009Q3

REPORT INFORMATION
  Report Type: 
  Country: None (occurrence: None)
  Receive Date: 20090805
  Receipt Date: 20090729
  Transmission Date: 20100115
  Serious: Yes (Hospitalization)
  Sender: FDA-Public Use
  Company Number: FR-ASTRAZENECA-2009SE06380

PATIENT
  Age: 31287 Day
  Sex: Female

DRUGS (5)
  1. ZESTORETIC [Suspect]
     Indication: HYPERTENSION
     Route: 048
     Dates: start: 20081231, end: 20081231
  2. PREVISCAN [Concomitant]
     Indication: ARRHYTHMIA
     Dosage: 0.25 DF IN ALTERNATION WITH 0.5 DF EVERY OTHER DAY
     Route: 048
  3. LEVOTHYROX [Concomitant]
     Indication: HYPOTHYROIDISM
     Route: 048
  4. TAHOR [Concomitant]
     Indication: HYPERCHOLESTEROLAEMIA
     Route: 048
  5. MIANSERINE [Concomitant]
     Route: 048

REACTIONS (3)
  - DISORIENTATION [None]
  - HALLUCINATION, VISUAL [None]
  - HYPONATRAEMIA [None]
